FAERS Safety Report 6988866-2 (Version None)
Quarter: 2010Q3

REPORT INFORMATION
  Report Type: 
  Country: None (occurrence: None)
  Receive Date: 20100830
  Receipt Date: 20100727
  Transmission Date: 20110219
  Serious: No
  Sender: FDA-Public Use
  Company Number: 2010094984

PATIENT
  Sex: Female

DRUGS (7)
  1. TOVIAZ [Suspect]
     Indication: HYPERTONIC BLADDER
     Dosage: 4 MG, 1X/DAY, ORAL
     Route: 048
     Dates: start: 20100614
  2. PRAVASTATIN [Concomitant]
  3. DIGOXIN [Concomitant]
  4. LASIX [Concomitant]
  5. LOSARTAN (LOSARTAN) [Concomitant]
  6. KETOCONAZOLE [Concomitant]
  7. TRIAMICNOLONE (TRIAMCINOLONE) [Concomitant]

REACTIONS (2)
  - DRUG INEFFECTIVE [None]
  - PRODUCT ODOUR ABNORMAL [None]
